FAERS Safety Report 20682746 (Version 1)
Quarter: 2022Q2

REPORT INFORMATION
  Report Type: Spontaneous
  Country: BR (occurrence: BR)
  Receive Date: 20220407
  Receipt Date: 20220407
  Transmission Date: 20220721
  Serious: Yes (Disabling, Other)
  Sender: FDA-Public Use
  Company Number: BR-ORGANON-O2204BRA000273

PATIENT
  Sex: Female

DRUGS (1)
  1. ETONOGESTREL [Suspect]
     Active Substance: ETONOGESTREL
     Dosage: 1 IMPLANT IN ARM
     Route: 058
     Dates: start: 20220220

REACTIONS (3)
  - Loss of personal independence in daily activities [Unknown]
  - Pain [Unknown]
  - Hyperaemia [Unknown]

NARRATIVE: CASE EVENT DATE: 20220101
